FAERS Safety Report 9325526 (Version 1)
Quarter: 2013Q2

REPORT INFORMATION
  Report Type: Spontaneous
  Country: US (occurrence: None)
  Receive Date: 20130531
  Receipt Date: 20130531
  Transmission Date: 20140414
  Serious: Yes (Other)
  Sender: FDA-Public Use
  Company Number: None

PATIENT
  Age: 24 Year
  Sex: Female
  Weight: 73.2 kg

DRUGS (2)
  1. HYDROXYCHLOROQUINE [Suspect]
     Indication: CONNECTIVE TISSUE DISORDER
     Dosage: ONE 200MG TABLET QD PO
     Route: 048
     Dates: start: 201206, end: 201209
  2. HYDROXYCHLOROQUINE [Suspect]
     Indication: SJOGREN^S SYNDROME
     Dosage: ONE 200MG TABLET QD PO
     Route: 048
     Dates: start: 201206, end: 201209

REACTIONS (5)
  - Nausea [None]
  - Myalgia [None]
  - Pruritus [None]
  - Gastritis [None]
  - Product substitution issue [None]
